FAERS Safety Report 6410915-0 (Version None)
Quarter: 2009Q4

REPORT INFORMATION
  Report Type: 
  Country: None (occurrence: None)
  Receive Date: 20091022
  Receipt Date: 20091016
  Transmission Date: 20100525
  Serious: Yes (Death)
  Sender: FDA-Public Use
  Company Number: RU-GENENTECH-292630

PATIENT
  Sex: Female

DRUGS (3)
  1. BEVACIZUMAB [Suspect]
     Indication: BREAST CANCER
     Dosage: 15 MG, UNK
     Route: 042
     Dates: start: 20090630
  2. TRASTUZUMAB [Suspect]
     Indication: BREAST CANCER
     Dosage: 6 MG, UNK
     Route: 042
     Dates: start: 20090630
  3. CAPECITABINE [Suspect]
     Indication: BREAST CANCER
     Dosage: 750 MG, UNK
     Route: 048
     Dates: start: 20090630

REACTIONS (1)
  - RESPIRATORY FAILURE [None]
